FAERS Safety Report 15341546 (Version 1)
Quarter: 2018Q3

REPORT INFORMATION
  Report Type: Spontaneous
  Country: US (occurrence: US)
  Receive Date: 20180901
  Receipt Date: 20180901
  Transmission Date: 20181010
  Serious: Yes (Hospitalization)
  Sender: FDA-Public Use
  Company Number: US-JNJFOC-20180825036

PATIENT
  Sex: Female

DRUGS (10)
  1. CLONIDINE. [Concomitant]
     Active Substance: CLONIDINE
  2. ALLOPURINOL. [Concomitant]
     Active Substance: ALLOPURINOL
  3. CHLORTHALIDONE. [Concomitant]
     Active Substance: CHLORTHALIDONE
  4. IMBRUVICA [Suspect]
     Active Substance: IBRUTINIB
     Indication: CHRONIC LYMPHOCYTIC LEUKAEMIA
     Route: 048
     Dates: start: 20180412
  5. LEVOTHYROXINE. [Concomitant]
     Active Substance: LEVOTHYROXINE
  6. METOPROLOL SUCCINATE. [Concomitant]
     Active Substance: METOPROLOL SUCCINATE
  7. QUETIAPINE. [Concomitant]
     Active Substance: QUETIAPINE
  8. CLOPIDOGREL [Concomitant]
     Active Substance: CLOPIDOGREL BISULFATE
  9. TIZANIDINE. [Concomitant]
     Active Substance: TIZANIDINE
  10. IMBRUVICA [Concomitant]
     Active Substance: IBRUTINIB
     Indication: CHRONIC LYMPHOCYTIC LEUKAEMIA

REACTIONS (3)
  - Nausea [Unknown]
  - Diarrhoea [Unknown]
  - Vomiting [Unknown]
